FAERS Safety Report 12099900 (Version 2)
Quarter: 2016Q1

REPORT INFORMATION
  Report Type: Spontaneous
  Country: FR (occurrence: FR)
  Receive Date: 20160222
  Receipt Date: 20160307
  Transmission Date: 20160526
  Serious: Yes (Other)
  Sender: FDA-Public Use
  Company Number: FR-PFIZER INC-2016068804

PATIENT
  Age: 79 Year
  Sex: Female
  Weight: 40 kg

DRUGS (4)
  1. GABAPENTINE BIOGARAN [Suspect]
     Active Substance: GABAPENTIN
     Dosage: 1800 MG, DAILY
  2. GABAPENTINE BIOGARAN [Suspect]
     Active Substance: GABAPENTIN
     Indication: NEURALGIA
     Dosage: 100 MG, 3X/DAY
     Dates: start: 201601, end: 201601
  3. GABAPENTINE BIOGARAN [Suspect]
     Active Substance: GABAPENTIN
     Indication: BURNING SENSATION
     Dosage: 200 MG, 3X/DAY
     Dates: start: 201601
  4. GABAPENTINE BIOGARAN [Suspect]
     Active Substance: GABAPENTIN
     Dosage: 300 MG, UNK

REACTIONS (7)
  - Drug ineffective [Not Recovered/Not Resolved]
  - Condition aggravated [Not Recovered/Not Resolved]
  - Urinary retention [Unknown]
  - Somnolence [Unknown]
  - Neuralgia [Not Recovered/Not Resolved]
  - Nausea [Not Recovered/Not Resolved]
  - Burning sensation [Not Recovered/Not Resolved]

NARRATIVE: CASE EVENT DATE: 201601
